FAERS Safety Report 19402462 (Version 4)
Quarter: 2021Q3

REPORT INFORMATION
  Report Type: Report from Study
  Country: US (occurrence: US)
  Receive Date: 20210610
  Receipt Date: 20210901
  Transmission Date: 20211014
  Serious: Yes (Hospitalization, Other)
  Sender: FDA-Public Use
  Company Number: US-BAYER-2021-102682

PATIENT
  Age: 75 Year
  Sex: Female

DRUGS (4)
  1. NEXAVAR [Suspect]
     Active Substance: SORAFENIB
     Indication: HEPATOCELLULAR CARCINOMA
     Dosage: 400 MG, BID
     Route: 048
     Dates: start: 20210302, end: 20210311
  2. NEXAVAR [Suspect]
     Active Substance: SORAFENIB
     Indication: HEPATOCELLULAR CARCINOMA
     Dosage: 400 MG, BID
     Route: 048
     Dates: start: 20210518
  3. NEXAVAR [Suspect]
     Active Substance: SORAFENIB
     Indication: HEPATOCELLULAR CARCINOMA
     Dosage: DAILY DOSE 200 MG
     Route: 048
  4. NEXAVAR [Suspect]
     Active Substance: SORAFENIB
     Indication: HEPATOCELLULAR CARCINOMA
     Dosage: 200 MG DAILY
     Route: 048

REACTIONS (21)
  - Thrombosis [Unknown]
  - Ammonia increased [Unknown]
  - Drug intolerance [None]
  - Thrombosis [None]
  - Fluid intake reduced [None]
  - Arthralgia [None]
  - Nausea [Not Recovered/Not Resolved]
  - Localised infection [None]
  - Diarrhoea [None]
  - Blood potassium decreased [Unknown]
  - Fatigue [None]
  - Alopecia [None]
  - Anosmia [None]
  - Contusion [Unknown]
  - Pruritus [None]
  - Ageusia [None]
  - Dizziness [Not Recovered/Not Resolved]
  - Atrial fibrillation [None]
  - Metastasis [Unknown]
  - Dehydration [Unknown]
  - Food refusal [None]
